FAERS Safety Report 18059430 (Version 2)
Quarter: 2020Q3

REPORT INFORMATION
  Report Type: Spontaneous
  Country: US (occurrence: US)
  Receive Date: 20200723
  Receipt Date: 20200727
  Transmission Date: 20201103
  Serious: Yes (Other)
  Sender: FDA-Public Use
  Company Number: US-PFIZER INC-2020279296

PATIENT
  Age: 53 Year
  Sex: Female

DRUGS (1)
  1. PREMPRO [Suspect]
     Active Substance: ESTROGENS, CONJUGATED\MEDROXYPROGESTERONE ACETATE
     Indication: HORMONE REPLACEMENT THERAPY
     Dosage: UNK, DAILY (0.45MG/1.5MG ONE TABLET DAILY)

REACTIONS (8)
  - Stress [Unknown]
  - Confusional state [Recovered/Resolved]
  - Feeling abnormal [Recovered/Resolved]
  - Pain [Unknown]
  - Malaise [Unknown]
  - Systemic lupus erythematosus [Unknown]
  - Therapeutic response unexpected [Unknown]
  - Irritability [Unknown]

NARRATIVE: CASE EVENT DATE: 2020
